FAERS Safety Report 13185825 (Version 1)
Quarter: 2017Q1

REPORT INFORMATION
  Report Type: Spontaneous
  Country: US (occurrence: US)
  Receive Date: 20170203
  Receipt Date: 20170203
  Transmission Date: 20170428
  Serious: Yes (Hospitalization, Other)
  Sender: FDA-Public Use
  Company Number: US-STANDARD HOMEOPATHIC COMPANY-1062734

PATIENT
  Age: 17 Month
  Sex: Female

DRUGS (1)
  1. BABY TEETHING (HYLAND HOMEOPATHIC) [Suspect]
     Active Substance: HOMEOPATHICS
     Indication: TEETHING
     Route: 048
     Dates: start: 2017, end: 2017

REACTIONS (5)
  - Muscular weakness [None]
  - Dyspnoea [None]
  - Fatigue [None]
  - Seizure [None]
  - Lethargy [None]

NARRATIVE: CASE EVENT DATE: 2017
